FAERS Safety Report 6697599-1 (Version None)
Quarter: 2010Q2

REPORT INFORMATION
  Report Type: 
  Country: None (occurrence: None)
  Receive Date: 20100422
  Receipt Date: 20100407
  Transmission Date: 20101027
  Serious: Yes (Life-Threatening, Hospitalization)
  Sender: FDA-Public Use
  Company Number: 2010001286

PATIENT
  Age: 60 Year
  Sex: Male

DRUGS (2)
  1. ERLOTINIB (ERLOTINIB) (TABLET) (ERLOTINIB) [Suspect]
     Indication: TONSIL CANCER
     Dosage: (150 MG), ORAL
     Route: 048
  2. TEMSIROLIMUS [Suspect]
     Indication: TONSIL CANCER
     Dosage: (15 MG, QW)

REACTIONS (10)
  - ATRIOVENTRICULAR BLOCK FIRST DEGREE [None]
  - BRAIN INJURY [None]
  - CARDIAC ARREST [None]
  - CEREBRAL ISCHAEMIA [None]
  - DEVICE FAILURE [None]
  - MYOCLONIC EPILEPSY [None]
  - PLEURAL EFFUSION [None]
  - PULMONARY HILUM MASS [None]
  - PULMONARY MASS [None]
  - UNRESPONSIVE TO STIMULI [None]
